FAERS Safety Report 23673521 (Version 1)
Quarter: 2024Q1

REPORT INFORMATION
  Report Type: Spontaneous
  Country: US (occurrence: None)
  Receive Date: 20240325
  Receipt Date: 20240325
  Transmission Date: 20240410
  Serious: Yes (unspecified)
  Sender: FDA-Public Use
  Company Number: None

PATIENT
  Age: 61 Year
  Sex: Male
  Weight: 99 kg

DRUGS (10)
  1. WEGOVY [Suspect]
     Active Substance: SEMAGLUTIDE
     Indication: Weight decreased
     Dates: start: 20240301, end: 20240301
  2. Metroprol [Concomitant]
  3. VERAPAMIL [Concomitant]
     Active Substance: VERAPAMIL HYDROCHLORIDE
  4. LOSARTAN [Concomitant]
     Active Substance: LOSARTAN
  5. XARELTO [Concomitant]
     Active Substance: RIVAROXABAN
  6. BIKTARVY [Concomitant]
     Active Substance: BICTEGRAVIR SODIUM\EMTRICITABINE\TENOFOVIR ALAFENAMIDE FUMARATE
  7. BORON [Concomitant]
     Active Substance: BORON
  8. D [Concomitant]
  9. C [Concomitant]
  10. MULTI [Concomitant]

REACTIONS (5)
  - Product communication issue [None]
  - Product supply issue [None]
  - Therapy interrupted [None]
  - Drug dose titration not performed [None]
  - Product prescribing issue [None]

NARRATIVE: CASE EVENT DATE: 20240301
